FAERS Safety Report 20648206 (Version 1)
Quarter: 2022Q1

REPORT INFORMATION
  Report Type: Report from Study
  Country: BR (occurrence: BR)
  Receive Date: 20220329
  Receipt Date: 20220329
  Transmission Date: 20220423
  Serious: Yes (Other)
  Sender: FDA-Public Use
  Company Number: BR-NOVARTISPH-NVSC2022BR069115

PATIENT
  Sex: Female

DRUGS (1)
  1. TOBREX [Suspect]
     Active Substance: TOBRAMYCIN
     Indication: Product used for unknown indication
     Dosage: UNK
     Route: 065
     Dates: start: 20220317, end: 20220318

REACTIONS (8)
  - Thermal burns of eye [Recovering/Resolving]
  - Eye swelling [Unknown]
  - Condition aggravated [Unknown]
  - Hordeolum [Unknown]
  - Eye allergy [Unknown]
  - Ocular hyperaemia [Unknown]
  - Lacrimation increased [Recovered/Resolved]
  - Eye pruritus [Unknown]

NARRATIVE: CASE EVENT DATE: 20220317
